FAERS Safety Report 17827992 (Version 1)
Quarter: 2020Q2

REPORT INFORMATION
  Report Type: Report from Study
  Country: IN (occurrence: IN)
  Receive Date: 20200527
  Receipt Date: 20200527
  Transmission Date: 20200714
  Serious: Yes (Other)
  Sender: FDA-Public Use
  Company Number: NVSC2020IN134411

PATIENT
  Age: 66 Year
  Sex: Male
  Weight: 82.7 kg

DRUGS (2)
  1. GALVUS MET [Suspect]
     Active Substance: METFORMIN HYDROCHLORIDE\VILDAGLIPTIN
     Indication: DIABETES MELLITUS
     Dosage: 1 DF, BID (1-0-1) (METFORMIN 850,VILDAGLIPTIN 50; UNITS NOT REPORTED)
     Route: 048
  2. GLYCOMET TRIO [Concomitant]
     Indication: DIABETES MELLITUS
     Dosage: 1 DF, QD
     Route: 048

REACTIONS (5)
  - Body mass index abnormal [Unknown]
  - Hyperglycaemia [Unknown]
  - Hyperthyroidism [Not Recovered/Not Resolved]
  - Insomnia [Unknown]
  - Pollakiuria [Unknown]

NARRATIVE: CASE EVENT DATE: 2020
